FAERS Safety Report 16171380 (Version 1)
Quarter: 2019Q2

REPORT INFORMATION
  Report Type: Spontaneous
  Country: US (occurrence: US)
  Receive Date: 20190408
  Receipt Date: 20190408
  Transmission Date: 20190711
  Serious: No
  Sender: FDA-Public Use
  Company Number: US-TARO-2018TAR00729

PATIENT
  Age: 45 Year
  Sex: Female
  Weight: 65.76 kg

DRUGS (4)
  1. THYROID [Concomitant]
     Active Substance: LEVOTHYROXINE\LIOTHYRONINE
  2. CICLOPIROX SHAMPOO 1% [Suspect]
     Active Substance: CICLOPIROX
     Dosage: APPLY TO SCALP EVERY FEW DAYS
     Route: 061
  3. CICLOPIROX SHAMPOO 1% [Suspect]
     Active Substance: CICLOPIROX
     Indication: DERMATITIS
     Dosage: APPLY TO SCALP EVERY FEW DAYS
     Route: 061
     Dates: start: 20180927
  4. CICLOPIROX SHAMPOO 1% [Suspect]
     Active Substance: CICLOPIROX
     Dosage: APPLY TO SCALP EVERY FEW DAYS
     Route: 061

REACTIONS (4)
  - Skin burning sensation [Recovered/Resolved]
  - Incorrect product administration duration [Not Recovered/Not Resolved]
  - Pruritus [Not Recovered/Not Resolved]
  - Product quality issue [Not Recovered/Not Resolved]

NARRATIVE: CASE EVENT DATE: 20180927
